FAERS Safety Report 10995688 (Version 2)
Quarter: 2015Q2

REPORT INFORMATION
  Report Type: Spontaneous
  Country: FR (occurrence: FR)
  Receive Date: 20150407
  Receipt Date: 20150415
  Transmission Date: 20150821
  Serious: Yes (Hospitalization)
  Sender: FDA-Public Use
  Company Number: FR-SA-2015SA032152

PATIENT
  Age: 29 Year
  Sex: Female

DRUGS (1)
  1. LEMTRADA [Suspect]
     Active Substance: ALEMTUZUMAB
     Indication: MULTIPLE SCLEROSIS
     Route: 042
     Dates: start: 201503, end: 20150316

REACTIONS (5)
  - Pulmonary embolism [Recovered/Resolved]
  - Pyrexia [Recovered/Resolved]
  - Superinfection [Recovered/Resolved]
  - Thrombophlebitis superficial [Recovered/Resolved]
  - Urticaria [Recovered/Resolved]

NARRATIVE: CASE EVENT DATE: 20150312
